FAERS Safety Report 10239733 (Version 3)
Quarter: 2015Q2

REPORT INFORMATION
  Report Type: Spontaneous
  Country: US (occurrence: US)
  Receive Date: 20140616
  Receipt Date: 20150512
  Transmission Date: 20150821
  Serious: Yes (Disabling, Other)
  Sender: FDA-Public Use
  Company Number: US-009507513-1406USA007275

PATIENT
  Sex: Male
  Weight: 94.79 kg

DRUGS (2)
  1. FINASTERIDE. [Suspect]
     Active Substance: FINASTERIDE
     Indication: ALOPECIA
     Dosage: 5 MG, QD
     Route: 048
     Dates: start: 20110427, end: 201309
  2. PROPECIA [Suspect]
     Active Substance: FINASTERIDE
     Indication: ALOPECIA
     Dosage: 1 MG, QD
     Route: 048
     Dates: start: 1994, end: 1996

REACTIONS (25)
  - Cholecystectomy [Unknown]
  - Benign prostatic hyperplasia [Unknown]
  - Constipation [Unknown]
  - Back pain [Unknown]
  - Testicular pain [Unknown]
  - Ejaculation disorder [Not Recovered/Not Resolved]
  - Sleep apnoea syndrome [Unknown]
  - Cholelithiasis [Unknown]
  - Migraine [Not Recovered/Not Resolved]
  - Loss of libido [Not Recovered/Not Resolved]
  - Gastrooesophageal reflux disease [Unknown]
  - Oesophagogastric fundoplasty [Unknown]
  - Peyronie^s disease [Unknown]
  - Radiculotomy [Unknown]
  - Ejaculation failure [Not Recovered/Not Resolved]
  - Depression [Not Recovered/Not Resolved]
  - Barrett^s oesophagus [Unknown]
  - Hyperlipidaemia [Unknown]
  - Hypogonadism [Unknown]
  - Reproductive tract disorder [Not Recovered/Not Resolved]
  - Cognitive disorder [Not Recovered/Not Resolved]
  - Sexual dysfunction [Not Recovered/Not Resolved]
  - Thinking abnormal [Not Recovered/Not Resolved]
  - Erectile dysfunction [Not Recovered/Not Resolved]
  - Blood testosterone decreased [Unknown]

NARRATIVE: CASE EVENT DATE: 1998
